FAERS Safety Report 5441425-5 (Version None)
Quarter: 2007Q3

REPORT INFORMATION
  Report Type: 
  Country: None (occurrence: None)
  Receive Date: 20070904
  Receipt Date: 20070828
  Transmission Date: 20080115
  Serious: Yes (Death)
  Sender: FDA-Public Use
  Company Number: US-JNJFOC-20070805726

PATIENT
  Sex: Male
  Weight: 72.58 kg

DRUGS (7)
  1. DOXIL [Suspect]
     Dosage: 2ND DOSE
     Route: 042
  2. DOXIL [Suspect]
     Indication: NON-SMALL CELL LUNG CANCER
     Dosage: 1ST DOSE
     Route: 042
  3. AVASTIN [Suspect]
     Indication: DRUG USE FOR UNKNOWN INDICATION
     Route: 065
  4. PROCRIT [Concomitant]
     Indication: NON-SMALL CELL LUNG CANCER
     Dosage: 1ST DOSE
     Route: 065
  5. ALOXI [Concomitant]
     Route: 065
  6. DECADRON [Concomitant]
     Route: 065
  7. VITAMIN B-12 [Concomitant]
     Route: 065

REACTIONS (1)
  - DEATH [None]
